FAERS Safety Report 16265104 (Version 2)
Quarter: 2020Q2

REPORT INFORMATION
  Report Type: Report from Study
  Country: US (occurrence: US)
  Receive Date: 20190502
  Receipt Date: 20200401
  Transmission Date: 20200713
  Serious: No
  Sender: FDA-Public Use
  Company Number: US-RETROPHIN, INC.-2019RTN00010

PATIENT
  Sex: Female

DRUGS (3)
  1. CHOLBAM [Suspect]
     Active Substance: CHOLIC ACID
     Dosage: 150 MG, 2X/DAY
     Route: 048
     Dates: start: 201902, end: 2019
  2. CHOLBAM [Suspect]
     Active Substance: CHOLIC ACID
     Indication: SMITH-LEMLI-OPITZ SYNDROME
     Dosage: 200 MG, 2X/DAY
     Route: 048
     Dates: start: 20180707, end: 201902
  3. CHOLBAM [Suspect]
     Active Substance: CHOLIC ACID
     Dosage: 200 MG, 2X/DAY
     Route: 048
     Dates: start: 2019

REACTIONS (2)
  - Diarrhoea [Recovered/Resolved]
  - Constipation [Recovered/Resolved]

NARRATIVE: CASE EVENT DATE: 2019
